FAERS Safety Report 4892137-8 (Version None)
Quarter: 2006Q1

REPORT INFORMATION
  Report Type: 
  Country: None (occurrence: None)
  Receive Date: 20060124
  Receipt Date: 20051128
  Transmission Date: 20060701
  Serious: No
  Sender: FDA-Public Use
  Company Number: MK200512-0006-1

PATIENT
  Age: 61 Year
  Sex: Male

DRUGS (1)
  1. NEUTROSPEC [Suspect]
     Indication: SEPSIS
     Dosage: 20 MCI, ONE TIME, IV
     Route: 042
     Dates: start: 20051128, end: 20051128

REACTIONS (5)
  - DISORIENTATION [None]
  - NASAL CONGESTION [None]
  - OCULAR HYPERAEMIA [None]
  - RESPIRATORY RATE INCREASED [None]
  - SPEECH DISORDER [None]
